FAERS Safety Report 18246588 (Version 1)
Quarter: 2020Q3

REPORT INFORMATION
  Report Type: Spontaneous
  Country: US (occurrence: US)
  Receive Date: 20200909
  Receipt Date: 20200909
  Transmission Date: 20201103
  Serious: Yes (Hospitalization)
  Sender: FDA-Public Use
  Company Number: None

PATIENT
  Age: 43 Year
  Sex: Female

DRUGS (18)
  1. REPLESTA [Concomitant]
     Active Substance: CHOLECALCIFEROL
  2. DEXTROAMPHET SACCHARAT, AMPHET ASPARTATE, DEXTROAMPHET SULFATE AND AMPHET SULFAT [Concomitant]
     Active Substance: AMPHETAMINE ASPARTATE\AMPHETAMINE SULFATE\DEXTROAMPHETAMINE SACCHARATE\DEXTROAMPHETAMINE SULFATE
  3. AZITHROMYCIN ANHYDROUS. [Concomitant]
     Active Substance: AZITHROMYCIN ANHYDROUS
  4. ARIPIPRAZOLE. [Concomitant]
     Active Substance: ARIPIPRAZOLE
  5. VENTOLIN HFA [Concomitant]
     Active Substance: ALBUTEROL SULFATE
  6. SILDENAFIL 20MG [Suspect]
     Active Substance: SILDENAFIL
     Indication: PULMONARY ARTERIAL HYPERTENSION
     Route: 048
     Dates: start: 20190920
  7. SPIRONOLACT [Concomitant]
     Active Substance: SPIRONOLACTONE
  8. PANTOPRAZOLE [Concomitant]
     Active Substance: PANTOPRAZOLE
  9. TOPIRAMATE. [Concomitant]
     Active Substance: TOPIRAMATE
  10. ELIQUIS [Concomitant]
     Active Substance: APIXABAN
  11. CLOTRIM/BETA CRE DIPROP [Concomitant]
  12. CITALOPRAM [Concomitant]
     Active Substance: CITALOPRAM HYDROBROMIDE
  13. CLONAZEPRAM [Concomitant]
  14. BISOPROL FUM [Concomitant]
     Active Substance: BISOPROLOL FUMARATE
  15. ZOLPIDEM [Concomitant]
     Active Substance: ZOLPIDEM TARTRATE
  16. FUROSEMIDE. [Concomitant]
     Active Substance: FUROSEMIDE
  17. POT CHLORIDE SOL [Concomitant]
  18. BUT/ASA/CAF [Concomitant]

REACTIONS (2)
  - Hospitalisation [None]
  - Therapy interrupted [None]

NARRATIVE: CASE EVENT DATE: 202008
